FAERS Safety Report 7001246-9 (Version None)
Quarter: 2010Q3

REPORT INFORMATION
  Report Type: 
  Country: None (occurrence: None)
  Receive Date: 20100920
  Receipt Date: 20070802
  Transmission Date: 20110219
  Serious: Yes (Hospitalization, Other)
  Sender: FDA-Public Use
  Company Number: US-ASTRAZENECA-2007UW02077

PATIENT
  Age: 46 Year
  Sex: Female
  Weight: 56.7 kg

DRUGS (20)
  1. SEROQUEL [Suspect]
     Indication: SCHIZOPHRENIA
     Route: 048
     Dates: start: 20021127, end: 20030417
  2. SEROQUEL [Suspect]
     Indication: DEPRESSION
     Route: 048
     Dates: start: 20021127, end: 20030417
  3. SEROQUEL [Suspect]
     Indication: PSYCHOTIC DISORDER
     Route: 048
     Dates: start: 20021127, end: 20030417
  4. SEROQUEL [Suspect]
     Dosage: 100 - 200 MG
     Route: 048
     Dates: start: 20021127
  5. SEROQUEL [Suspect]
     Dosage: 100 - 200 MG
     Route: 048
     Dates: start: 20021127
  6. SEROQUEL [Suspect]
     Dosage: 100 - 200 MG
     Route: 048
     Dates: start: 20021127
  7. SEROQUEL [Suspect]
     Route: 048
     Dates: start: 20030418, end: 20040701
  8. SEROQUEL [Suspect]
     Route: 048
     Dates: start: 20030418, end: 20040701
  9. SEROQUEL [Suspect]
     Route: 048
     Dates: start: 20030418, end: 20040701
  10. SEROQUEL [Suspect]
     Dosage: 100 TO 400 MG
     Route: 048
     Dates: start: 20040701, end: 20060401
  11. SEROQUEL [Suspect]
     Dosage: 100 TO 400 MG
     Route: 048
     Dates: start: 20040701, end: 20060401
  12. SEROQUEL [Suspect]
     Dosage: 100 TO 400 MG
     Route: 048
     Dates: start: 20040701, end: 20060401
  13. GEODON [Concomitant]
     Dates: start: 20060321, end: 20060501
  14. HALDOL [Concomitant]
     Dates: start: 20020101
  15. TOPAMAX [Concomitant]
     Route: 048
     Dates: start: 20040426
  16. ZOLOFT [Concomitant]
     Route: 048
     Dates: start: 20040426
  17. PREMARIN [Concomitant]
     Route: 048
     Dates: start: 20040426
  18. COGENTIN [Concomitant]
     Route: 048
     Dates: start: 20021127
  19. ATIVAN [Concomitant]
     Route: 048
     Dates: start: 20021127
  20. PAXIL [Concomitant]
     Route: 048
     Dates: start: 20021127

REACTIONS (9)
  - BRONCHITIS [None]
  - DIZZINESS [None]
  - DYSPNOEA [None]
  - OBESITY [None]
  - PAIN IN EXTREMITY [None]
  - PNEUMONIA [None]
  - SUICIDE ATTEMPT [None]
  - TYPE 2 DIABETES MELLITUS [None]
  - WEIGHT INCREASED [None]
